FAERS Safety Report 16822292 (Version 1)
Quarter: 2019Q4

REPORT INFORMATION
  Report Type: Spontaneous
  Country: US (occurrence: US)
  Receive Date: 20190918
  Receipt Date: 20190918
  Transmission Date: 20200122
  Serious: Yes (Other)
  Sender: FDA-Public Use
  Company Number: None

PATIENT
  Age: 65 Year
  Sex: Female
  Weight: 51.57 kg

DRUGS (22)
  1. IBRANCE [Suspect]
     Active Substance: PALBOCICLIB
     Indication: BREAST CANCER
     Dosage: 75 MG 1C QDX21D, 7D OFF?
     Route: 048
     Dates: start: 20190826
  2. ASPIRIN 325MG [Concomitant]
     Active Substance: ASPIRIN
  3. VALACYCLOVIR [Concomitant]
     Active Substance: VALACYCLOVIR HYDROCHLORIDE
  4. LETROZOLE. [Concomitant]
     Active Substance: LETROZOLE
  5. CYCLOSPORINE MODIFIED [Concomitant]
     Active Substance: CYCLOSPORINE
  6. PREDNISONE. [Concomitant]
     Active Substance: PREDNISONE
  7. TRAMADOL. [Concomitant]
     Active Substance: TRAMADOL
  8. FIBERCON [Concomitant]
     Active Substance: CALCIUM POLYCARBOPHIL
  9. OMEPRAZOLE. [Concomitant]
     Active Substance: OMEPRAZOLE
  10. PROCHLORPERAZINE. [Concomitant]
     Active Substance: PROCHLORPERAZINE
  11. COLCRYS [Concomitant]
     Active Substance: COLCHICINE
  12. GENGRAF [Concomitant]
     Active Substance: CYCLOSPORINE
  13. LYRICA [Concomitant]
     Active Substance: PREGABALIN
  14. VITAMIN C [Concomitant]
     Active Substance: ASCORBIC ACID
  15. OCUVITE [Concomitant]
     Active Substance: VITAMINS
  16. DILTIAZEM CD [Concomitant]
     Active Substance: DILTIAZEM
  17. FUROSEMIDE. [Concomitant]
     Active Substance: FUROSEMIDE
  18. ACETAMINOPHEN ER [Concomitant]
     Active Substance: ACETAMINOPHEN
  19. ACYCLOVIR. [Concomitant]
     Active Substance: ACYCLOVIR
  20. CALCIUM CARBONATE. [Concomitant]
     Active Substance: CALCIUM CARBONATE
  21. VITAMIN D (ERGOCALCIFEROL) [Concomitant]
     Active Substance: ERGOCALCIFEROL
  22. ZOLPIDEM [Concomitant]
     Active Substance: ZOLPIDEM TARTRATE

REACTIONS (2)
  - Renal failure [None]
  - Dialysis [None]
